FAERS Safety Report 10029174 (Version 2)
Quarter: 2014Q1

REPORT INFORMATION
  Report Type: Report from Study
  Country: ES (occurrence: ES)
  Receive Date: 20140321
  Receipt Date: 20140321
  Transmission Date: 20141002
  Serious: Yes (Hospitalization)
  Sender: FDA-Public Use
  Company Number: ES-EXELIXIS-XL18414004071

PATIENT
  Age: 53 Year
  Sex: Male
  Weight: 71 kg

DRUGS (9)
  1. XL184 [Suspect]
     Indication: HEPATOCELLULAR CARCINOMA
     Dosage: 60 MG, QD
     Route: 048
     Dates: start: 20140123, end: 20140226
  2. VIREAD [Concomitant]
  3. LANSOPRAZOL [Concomitant]
  4. TRAMADOL [Concomitant]
  5. SILODYX [Concomitant]
  6. COTRIMAZOL [Concomitant]
  7. MENAVEN [Concomitant]
  8. FENTANIL [Concomitant]
  9. PRIMPERAN [Concomitant]

REACTIONS (1)
  - Hepatic encephalopathy [Recovered/Resolved with Sequelae]
